FAERS Safety Report 12641615 (Version 1)
Quarter: 2016Q3

REPORT INFORMATION
  Report Type: Spontaneous
  Country: CA (occurrence: CA)
  Receive Date: 20160810
  Receipt Date: 20160810
  Transmission Date: 20161109
  Serious: Yes (Other)
  Sender: FDA-Public Use
  Company Number: CA-MEDA-2016080027

PATIENT
  Age: 17 Year
  Sex: Male

DRUGS (1)
  1. FELBAMATE. [Suspect]
     Active Substance: FELBAMATE
     Indication: EPILEPSY

REACTIONS (2)
  - Generalised tonic-clonic seizure [Unknown]
  - Decreased appetite [Unknown]
